FAERS Safety Report 10158277 (Version 1)
Quarter: 2014Q2

REPORT INFORMATION
  Report Type: Spontaneous
  Country: US (occurrence: US)
  Receive Date: 20140507
  Receipt Date: 20140507
  Transmission Date: 20141212
  Serious: No
  Sender: FDA-Public Use
  Company Number: US-009507513-1404USA015079

PATIENT
  Sex: Female

DRUGS (2)
  1. CLARITIN CHEWABLE TABLETS [Suspect]
     Indication: EYE SWELLING
     Dosage: 5 MG, ONCE
     Route: 048
     Dates: start: 20140413
  2. CLARITIN CHEWABLE TABLETS [Suspect]
     Indication: EYE PRURITUS

REACTIONS (1)
  - Dysgeusia [Unknown]
